FAERS Safety Report 15280758 (Version 1)
Quarter: 2018Q3

REPORT INFORMATION
  Report Type: Spontaneous
  Country: US (occurrence: US)
  Receive Date: 20180730
  Receipt Date: 20180730
  Transmission Date: 20181010
  Serious: Yes (Death, Hospitalization, Disabling, Other)
  Sender: FDA-Public Use
  Company Number: None

PATIENT
  Age: 62 Year
  Sex: Female
  Weight: 60.78 kg

DRUGS (10)
  1. NEURONTIN [Suspect]
     Active Substance: GABAPENTIN
  2. BENADRIL [Concomitant]
  3. GERITOL [Concomitant]
     Active Substance: MINERALS\VITAMINS
  4. COGENTIN [Suspect]
     Active Substance: BENZTROPINE MESYLATE
     Indication: PRODUCT USED FOR UNKNOWN INDICATION
     Dates: start: 20180625, end: 20180702
  5. HALDOL [Suspect]
     Active Substance: HALOPERIDOL
  6. ZYPREXA [Suspect]
     Active Substance: OLANZAPINE
  7. LORAZEPAM. [Suspect]
     Active Substance: LORAZEPAM
  8. REMERON [Suspect]
     Active Substance: MIRTAZAPINE
  9. HYDROXYZINE [Suspect]
     Active Substance: HYDROXYZINE HYDROCHLORIDE
  10. 81 MG OF ASPIRIN [Concomitant]

REACTIONS (5)
  - Neuropathy peripheral [None]
  - Tremor [None]
  - Saliva altered [None]
  - Grief reaction [None]
  - Death of relative [None]

NARRATIVE: CASE EVENT DATE: 20180702
